FAERS Safety Report 9030453 (Version 1)
Quarter: 2013Q1

REPORT INFORMATION
  Report Type: Spontaneous
  Country: US (occurrence: US)
  Receive Date: 20130122
  Receipt Date: 20130122
  Transmission Date: 20140127
  Serious: Yes (Other)
  Sender: FDA-Public Use
  Company Number: US-PFIZER INC-2013024352

PATIENT
  Age: 74 Year
  Sex: Female
  Weight: 58.5 kg

DRUGS (4)
  1. LIPITOR [Suspect]
     Indication: BLOOD CHOLESTEROL ABNORMAL
     Dosage: 20 MG, DAILY
  2. LIPITOR [Suspect]
     Dosage: 40 MG, DAILY
  3. LIPITOR [Suspect]
     Dosage: UNK
  4. BENICAR HCT [Concomitant]
     Indication: HYPERTENSION
     Dosage: 12.5 MG, DAILY

REACTIONS (2)
  - Cataract [Unknown]
  - Blood triglycerides abnormal [Unknown]
